FAERS Safety Report 8160871-2 (Version None)
Quarter: 2012Q1

REPORT INFORMATION
  Report Type: 
  Country: None (occurrence: None)
  Receive Date: 20120223
  Receipt Date: 20120220
  Transmission Date: 20120608
  Serious: Yes (Hospitalization)
  Sender: FDA-Public Use
  Company Number: PHHO2012DE001019

PATIENT
  Sex: Female
  Weight: 94 kg

DRUGS (11)
  1. LAMOTRIGINE [Concomitant]
     Indication: CONVULSION
     Dosage: 200-0-100 MG, QD
     Route: 048
  2. HYDROCHLOROTHIAZIDE [Concomitant]
     Indication: HYPERTENSION
     Dosage: 25 MG, QD
     Route: 048
     Dates: start: 20100301, end: 20111226
  3. LEVOTHYROXINE SODIUM [Concomitant]
     Indication: HYPOTHYROIDISM
     Dosage: 25 MG, QD
     Route: 048
     Dates: start: 20090601
  4. BLINDED NO TREATMENT RECEIVED [Suspect]
     Indication: TUBEROUS SCLEROSIS
     Dosage: CODE NOT BROKEN
     Dates: start: 20100520, end: 20110913
  5. BLINDED PLACEBO [Suspect]
     Indication: TUBEROUS SCLEROSIS
     Dosage: CODE NOT BROKEN
     Dates: start: 20100520, end: 20110913
  6. RAD001 [Suspect]
     Indication: TUBEROUS SCLEROSIS
     Dosage: 10 MG, QD
     Route: 048
     Dates: start: 20111015
  7. SABRIL [Concomitant]
     Indication: CONVULSION
     Dosage: 1500 MG, BID
     Route: 048
     Dates: start: 20070101
  8. AFINITOR [Suspect]
     Indication: TUBEROUS SCLEROSIS
     Dosage: CODE NOT BROKEN
     Dates: start: 20100520, end: 20110913
  9. LEPTILAN [Concomitant]
     Indication: CONVULSION
     Dosage: 900+1200 MG, QD
     Route: 048
     Dates: start: 20070101
  10. MELPERONE [Concomitant]
     Indication: AFFECTIVE DISORDER
     Dosage: 50 MG, BID
     Route: 048
     Dates: start: 20110401
  11. IMPLANON [Concomitant]
     Indication: CONTRACEPTION
     Dosage: UNK
     Dates: start: 20110110

REACTIONS (1)
  - VERTIGO POSITIONAL [None]
